FAERS Safety Report 7329958-8 (Version None)
Quarter: 2011Q1

REPORT INFORMATION
  Report Type: 
  Country: None (occurrence: None)
  Receive Date: 20110303
  Receipt Date: 20110228
  Transmission Date: 20110831
  Serious: Yes (Other)
  Sender: FDA-Public Use
  Company Number: US-BAYER-2011-019087

PATIENT
  Sex: Female

DRUGS (2)
  1. EYE DROPS [Concomitant]
     Dosage: UNK
  2. MS PATHWAYS PATIENT SUPPORT PROGRAM BETAFERON [Suspect]
     Indication: MULTIPLE SCLEROSIS
     Dosage: 8 MIU, QOD
     Route: 058
     Dates: start: 20100227

REACTIONS (3)
  - EYE DISORDER [None]
  - BALANCE DISORDER [None]
  - CATARACT [None]
